FAERS Safety Report 8006901-X (Version None)
Quarter: 2011Q4

REPORT INFORMATION
  Report Type: 
  Country: None (occurrence: None)
  Receive Date: 20111227
  Receipt Date: 20111219
  Transmission Date: 20120403
  Serious: Yes (Hospitalization, Other)
  Sender: FDA-Public Use
  Company Number: JP-JNJFOC-20111207770

PATIENT
  Age: 67 Year
  Sex: Male

DRUGS (9)
  1. ASPIRIN [Concomitant]
     Route: 048
  2. LENDORMIN [Concomitant]
     Route: 048
  3. LANSOPRAZOLE [Concomitant]
     Route: 065
  4. RISPERDAL [Suspect]
     Indication: PRODUCT USED FOR UNKNOWN INDICATION
     Route: 048
  5. CARVEDILOL [Concomitant]
     Route: 048
  6. WARFARIN POTASSIUM [Concomitant]
     Route: 048
  7. ANPLAG [Concomitant]
     Route: 048
  8. MAGMITT [Concomitant]
     Route: 048
  9. LIPITOR [Concomitant]
     Route: 048

REACTIONS (3)
  - ALTERED STATE OF CONSCIOUSNESS [None]
  - AMNESIA [None]
  - DELIRIUM [None]
